FAERS Safety Report 6381453-9 (Version None)
Quarter: 2009Q3

REPORT INFORMATION
  Report Type: 
  Country: None (occurrence: None)
  Receive Date: 20090924
  Receipt Date: 20090915
  Transmission Date: 20100115
  Serious: Yes (Hospitalization, Disabling, Other)
  Sender: FDA-Public Use
  Company Number: GB-EBEWE-1373MTX09

PATIENT
  Age: 63 Year
  Sex: Female
  Weight: 61.8 kg

DRUGS (13)
  1. ENBREL [Suspect]
     Indication: TUBERCULOSIS
     Dosage: 50MG/WEEK, SUBCUTANEOUS
     Route: 058
     Dates: start: 20090406, end: 20090501
  2. METHOTREXATE [Suspect]
  3. CHOLESTYRAMINE [Concomitant]
  4. CODEINE [Concomitant]
  5. COTRIM [Concomitant]
  6. ETHAMBUTOL HYDROCHLORIDE [Concomitant]
  7. FLUOXETINE [Concomitant]
  8. MS CONTIN [Concomitant]
  9. OMEPRAZOLE [Concomitant]
  10. ACETAMINOPHEN [Concomitant]
  11. PYRIDOXINE [Concomitant]
  12. RAMIPRIL [Concomitant]
  13. RIFATER [Concomitant]

REACTIONS (6)
  - ANAEMIA [None]
  - BLOOD ALBUMIN DECREASED [None]
  - DIARRHOEA [None]
  - LYMPHADENOPATHY [None]
  - PLEURAL EFFUSION [None]
  - WEIGHT DECREASED [None]
